FAERS Safety Report 8501894-0 (Version None)
Quarter: 2012Q3

REPORT INFORMATION
  Report Type: 
  Country: None (occurrence: None)
  Receive Date: 20120702
  Receipt Date: 20120621
  Transmission Date: 20120928
  Serious: Yes (Death)
  Sender: FDA-Public Use
  Company Number: DKLU1082283

PATIENT
  Age: 13 Month
  Sex: Female

DRUGS (2)
  1. SABRIL [Suspect]
     Indication: INFANTILE SPASMS
     Dosage: 250 M MILLIGRAM(S), 2 IN 1 D, ORAL 11.5 ML MILLILITRE(S), 2 IN 1 D
     Route: 048
     Dates: start: 20120501
  2. LORAZEPAM [Concomitant]

REACTIONS (2)
  - RESPIRATORY DISORDER [None]
  - DISEASE COMPLICATION [None]
